FAERS Safety Report 17089186 (Version 1)
Quarter: 2019Q4

REPORT INFORMATION
  Report Type: Spontaneous
  Country: DE (occurrence: DE)
  Receive Date: 20191128
  Receipt Date: 20191128
  Transmission Date: 20200122
  Serious: Yes (Other)
  Sender: FDA-Public Use
  Company Number: DE-ASTRAZENECA-2019SF69656

PATIENT
  Age: 80 Year
  Sex: Male

DRUGS (9)
  1. SOLEDUM FORTE [Concomitant]
  2. SALBUTAMOL [Concomitant]
     Active Substance: ALBUTEROL
  3. THEOPHYLLIN [Concomitant]
     Active Substance: THEOPHYLLINE ANHYDROUS
  4. XOLAIR [Concomitant]
     Active Substance: OMALIZUMAB
     Dates: start: 2007, end: 2012
  5. VIANI FORTE [Concomitant]
     Active Substance: FLUTICASONE PROPIONATE\SALMETEROL XINAFOATE
     Dosage: 50/500 1-0-1
  6. LONG-TERM OXYGEN THERAPY [Concomitant]
  7. SPIRIVA RESPIMAT [Concomitant]
     Active Substance: TIOTROPIUM BROMIDE
     Dosage: 2.5 2-0-0
  8. PREDNISOLON [Concomitant]
     Active Substance: PREDNISOLONE
  9. BENRALIZUMAB. [Suspect]
     Active Substance: BENRALIZUMAB
     Route: 058
     Dates: start: 201904

REACTIONS (2)
  - Condition aggravated [Unknown]
  - Dyspnoea exertional [Unknown]

NARRATIVE: CASE EVENT DATE: 201910
